FAERS Safety Report 21787614 (Version 13)
Quarter: 2023Q4

REPORT INFORMATION
  Report Type: Report from Study
  Country: AU (occurrence: None)
  Receive Date: 20221228
  Receipt Date: 20231107
  Transmission Date: 20240110
  Serious: Yes (Hospitalization)
  Sender: FDA-Public Use
  Company Number: AU-ROCHE-3194260

PATIENT
  Age: 63 Year
  Sex: Male
  Weight: 181.3 kg

DRUGS (56)
  1. GLOFITAMAB [Suspect]
     Active Substance: GLOFITAMAB
     Indication: Diffuse large B-cell lymphoma
     Dosage: ON 14/FEB/2023, RECEIVED FIRST DOSE?ON 07/DEC/2022, HE RECEIVED HIS MOST RECENT DOSE OF GLOFITAMAB.
     Route: 042
     Dates: start: 20221025, end: 20221025
  2. POLATUZUMAB VEDOTIN [Suspect]
     Active Substance: POLATUZUMAB VEDOTIN
     Indication: Diffuse large B-cell lymphoma
     Dosage: ON 19/OCT/2022, FIRST DOSE RECEIVED?ON 21/DEC/2022, HE RECEIVED HIS LAST DOSE OF  POLATUZUMAB VEDOTI
     Route: 042
     Dates: start: 20220928, end: 20220928
  3. RITUXIMAB [Suspect]
     Active Substance: RITUXIMAB
     Indication: Diffuse large B-cell lymphoma
     Dosage: ON 19/OCT/2022, FIRST DOSE RECEIVED?ON 21/DEC/2022, HE RECEIVED HIS LAST DOSE OF RITUXIMAB PRIOR TO
     Route: 041
     Dates: start: 20220908, end: 20220929
  4. CYCLOPHOSPHAMIDE [Suspect]
     Active Substance: CYCLOPHOSPHAMIDE
     Indication: Diffuse large B-cell lymphoma
     Dosage: ON 19/OCT/2022, FIRST DOSE RECEIVED?ON 21/DEC/2022, HE RECEIVED HIS LAST DOSE OF CYCLOPHOSPHAMIDE PR
     Route: 042
     Dates: start: 20220908, end: 20220928
  5. VINCRISTINE [Suspect]
     Active Substance: VINCRISTINE
     Indication: Diffuse large B-cell lymphoma
     Dosage: 19/OCT/2022
     Route: 042
     Dates: start: 20220908, end: 20220908
  6. DOXORUBICIN [Suspect]
     Active Substance: DOXORUBICIN
     Indication: Diffuse large B-cell lymphoma
     Dosage: ON 19/OCT/2022, FIRST DOSE RECEIVED?ON 21/DEC/2022, HE RECEIVED HIS LAST DOSE OF DOXORUBICIN PRIOR T
     Route: 042
     Dates: start: 20220908, end: 20220928
  7. PREDNISOLONE [Suspect]
     Active Substance: PREDNISOLONE
     Indication: Diffuse large B-cell lymphoma
     Dosage: ON 19/OCT/2022, FIRST DOSE RECEIVED?ON 21/DEC/2022, HE RECEIVED HIS LAST DOSE OF PREDNISOLONE PRIOR
     Route: 048
     Dates: start: 20220908, end: 20221002
  8. SPIRIVA [Concomitant]
     Active Substance: TIOTROPIUM BROMIDE MONOHYDRATE
     Indication: Asthma
     Route: 048
     Dates: start: 2001
  9. PREGABALIN [Concomitant]
     Active Substance: PREGABALIN
     Indication: Pain
     Route: 048
     Dates: start: 20220829
  10. VENTOLIN [Concomitant]
     Active Substance: ALBUTEROL SULFATE
     Indication: Asthma
     Dates: start: 2001
  11. ACETAMINOPHEN [Concomitant]
     Active Substance: ACETAMINOPHEN
     Indication: Pain
     Route: 048
     Dates: start: 20220829
  12. ACETAMINOPHEN [Concomitant]
     Active Substance: ACETAMINOPHEN
     Route: 048
     Dates: start: 20221019
  13. OXYCODONE [Concomitant]
     Active Substance: OXYCODONE
     Indication: Pain
     Route: 048
     Dates: start: 20220829
  14. OXYCODONE [Concomitant]
     Active Substance: OXYCODONE
     Dosage: 1 UNIT
     Route: 048
     Dates: start: 20230207, end: 20230207
  15. PANTOPRAZOLE [Concomitant]
     Active Substance: PANTOPRAZOLE
     Route: 048
     Dates: start: 20220829
  16. SULFAMETHOXAZOLE\TRIMETHOPRIM [Concomitant]
     Active Substance: SULFAMETHOXAZOLE\TRIMETHOPRIM
     Route: 048
     Dates: start: 20220826
  17. CEPHALEXIN [Concomitant]
     Active Substance: CEPHALEXIN
     Indication: Cellulitis
     Route: 048
     Dates: start: 20220927
  18. ENOXAPARIN [Concomitant]
     Active Substance: ENOXAPARIN
     Route: 048
     Dates: start: 20221005
  19. ENOXAPARIN [Concomitant]
     Active Substance: ENOXAPARIN
     Dates: start: 20221020, end: 20221025
  20. COLOXYL WITH SENNA [Concomitant]
     Indication: Constipation
     Route: 048
     Dates: start: 20220829
  21. SODIUM BICARBONATE [Concomitant]
     Active Substance: SODIUM BICARBONATE
     Indication: Prophylaxis
     Dates: start: 20220829, end: 20220926
  22. CEFTRIAXONE [Concomitant]
     Active Substance: CEFTRIAXONE\CEFTRIAXONE SODIUM
     Indication: Pneumonia
     Route: 042
     Dates: start: 20221006, end: 20221010
  23. DOXYCYCLINE [Concomitant]
     Active Substance: DOXYCYCLINE
     Route: 048
  24. ONDANSETRON [Concomitant]
     Active Substance: ONDANSETRON
     Indication: Nausea
     Route: 048
  25. ONDANSETRON [Concomitant]
     Active Substance: ONDANSETRON
     Route: 048
     Dates: start: 20230207, end: 20230208
  26. FENTANYL [Concomitant]
     Active Substance: FENTANYL\FENTANYL CITRATE
     Indication: Pain
     Route: 058
     Dates: start: 20221005, end: 20221010
  27. NYSTATIN [Concomitant]
     Active Substance: NYSTATIN
     Route: 048
  28. LANOLIN\PARAFFIN [Concomitant]
     Active Substance: LANOLIN\PARAFFIN
     Indication: Dry eye
  29. SYSTANE (HYPROMELLOSE 2910 (4000 MPA.S)) [Concomitant]
     Active Substance: HYPROMELLOSE 2910 (4000 MPA.S)
     Indication: Dry eye
     Dates: start: 20221019
  30. METOPROLOL [Concomitant]
     Active Substance: METOPROLOL
     Indication: Atrial flutter
     Route: 048
  31. LORATADINE [Concomitant]
     Active Substance: LORATADINE
     Indication: Pruritus
     Route: 048
  32. BETAMETHASONE [Concomitant]
     Active Substance: BETAMETHASONE
     Indication: Stasis dermatitis
     Dates: start: 20221019, end: 20221020
  33. METHYLPREDNISOLONE [Concomitant]
     Active Substance: METHYLPREDNISOLONE
     Indication: Stasis dermatitis
     Route: 061
     Dates: start: 20221021
  34. SOTALOL [Concomitant]
     Active Substance: SOTALOL
     Indication: Atrial flutter
     Route: 048
     Dates: start: 20221019
  35. FILGRASTIM [Concomitant]
     Active Substance: FILGRASTIM
     Dates: start: 20221231, end: 20230213
  36. DIAZEPAM [Concomitant]
     Active Substance: DIAZEPAM
  37. DIGOXIN [Concomitant]
     Active Substance: DIGOXIN
  38. MOVICOL [Concomitant]
     Active Substance: POLYETHYLENE GLYCOL 3350\POTASSIUM CHLORIDE\SODIUM BICARBONATE\SODIUM CHLORIDE
     Dates: start: 20221007, end: 20221011
  39. NYSTATIN [Concomitant]
     Active Substance: NYSTATIN
     Dates: start: 20221007, end: 20221014
  40. LANOLIN\PARAFFIN [Concomitant]
     Active Substance: LANOLIN\PARAFFIN
     Dates: start: 20221011, end: 20221013
  41. SYSTANE (HYPROMELLOSE 2910 (4000 MPA.S)) [Concomitant]
     Active Substance: HYPROMELLOSE 2910 (4000 MPA.S)
     Dates: start: 20221012, end: 20221014
  42. METOPROLOL [Concomitant]
     Active Substance: METOPROLOL
     Dates: start: 20221012, end: 20221012
  43. LORATADINE [Concomitant]
     Active Substance: LORATADINE
     Dates: start: 20221014, end: 20221014
  44. LIDOCAINE [Concomitant]
     Active Substance: LIDOCAINE
     Dates: start: 20230113, end: 20230201
  45. CLOTRIMAZOLE [Concomitant]
     Active Substance: CLOTRIMAZOLE
     Dates: start: 20230215, end: 20230216
  46. METHYLNALTREXONE [Concomitant]
     Active Substance: METHYLNALTREXONE
     Dates: start: 20230221, end: 20230221
  47. MORPHINE [Concomitant]
     Active Substance: MORPHINE
     Dates: start: 20230217, end: 20230221
  48. PARAFFIN [Concomitant]
     Active Substance: PARAFFIN
     Dates: start: 20230218, end: 20230220
  49. POLYETHYLENE GLYCOLS [Concomitant]
     Active Substance: POLYETHYLENE GLYCOLS
  50. SYMBICORT [Concomitant]
     Active Substance: BUDESONIDE\FORMOTEROL FUMARATE DIHYDRATE
  51. EMPAGLIFLOZIN [Concomitant]
     Active Substance: EMPAGLIFLOZIN
     Dates: start: 20230127
  52. LIDOCAINE HYDROCHLORIDE [Concomitant]
     Active Substance: DEXTROSE MONOHYDRATE\EPINEPHRINE\EPINEPHRINE BITARTRATE\LIDOCAINE\LIDOCAINE HYDROCHLORIDE\LIDOCAINE
     Dates: start: 20230217
  53. METHADONE [Concomitant]
     Active Substance: METHADONE HYDROCHLORIDE
     Route: 048
     Dates: start: 20230217, end: 20230331
  54. TERBINAFINE [Concomitant]
     Active Substance: TERBINAFINE
     Route: 061
     Dates: start: 20230216, end: 20230220
  55. ALLOPURINOL [Concomitant]
     Active Substance: ALLOPURINOL
     Route: 048
     Dates: start: 20220820
  56. LACTULOSE [Concomitant]
     Active Substance: LACTULOSE
     Route: 048
     Dates: start: 20221012, end: 20221012

REACTIONS (6)
  - Hypervolaemia [Recovered/Resolved]
  - Abdominal pain [Recovered/Resolved]
  - Pneumonia [Recovered/Resolved]
  - Lumbar vertebral fracture [Recovered/Resolved]
  - Venous thrombosis limb [Recovered/Resolved]
  - Deep vein thrombosis [Recovered/Resolved]

NARRATIVE: CASE EVENT DATE: 20221004
